FAERS Safety Report 6317318-8 (Version None)
Quarter: 2009Q3

REPORT INFORMATION
  Report Type: 
  Country: None (occurrence: None)
  Receive Date: 20090821
  Receipt Date: 20090811
  Transmission Date: 20100115
  Serious: Yes (Death, Hospitalization)
  Sender: FDA-Public Use
  Company Number: US-BIOGENIDEC-2007BI011945

PATIENT
  Age: 46 Year
  Sex: Male

DRUGS (3)
  1. AVONEX [Suspect]
     Indication: MULTIPLE SCLEROSIS
     Route: 030
     Dates: start: 20000101, end: 20000101
  2. AVONEX [Suspect]
     Route: 030
     Dates: start: 20070509, end: 20080402
  3. TYSABRI [Concomitant]
     Indication: MULTIPLE SCLEROSIS
     Route: 042
     Dates: start: 20071017, end: 20080402

REACTIONS (3)
  - OESOPHAGEAL CARCINOMA [None]
  - OESOPHAGEAL CARCINOMA RECURRENT [None]
  - OESOPHAGECTOMY [None]
